FAERS Safety Report 23596866 (Version 1)
Quarter: 2024Q1

REPORT INFORMATION
  Report Type: Spontaneous
  Country: US (occurrence: US)
  Receive Date: 20240305
  Receipt Date: 20240305
  Transmission Date: 20240410
  Serious: No
  Sender: FDA-Public Use
  Company Number: US-PFIZER INC-202400056652

PATIENT
  Age: 8 Year
  Sex: Female

DRUGS (1)
  1. OXBRYTA [Suspect]
     Active Substance: VOXELOTOR
     Dosage: 300MG/2 TABLETS ONCE DAILY
     Route: 048

REACTIONS (1)
  - Eye colour change [Not Recovered/Not Resolved]
